FAERS Safety Report 19074717 (Version 1)
Quarter: 2021Q1

REPORT INFORMATION
  Report Type: Spontaneous
  Country: US (occurrence: US)
  Receive Date: 20210330
  Receipt Date: 20210330
  Transmission Date: 20210420
  Serious: No
  Sender: FDA-Public Use
  Company Number: US-ROCHE-2752485

PATIENT
  Sex: Male

DRUGS (8)
  1. ACETAMINOPHENE [Concomitant]
     Active Substance: ACETAMINOPHEN
  2. TADALAFIL. [Concomitant]
     Active Substance: TADALAFIL
  3. ERIVEDGE [Suspect]
     Active Substance: VISMODEGIB
     Indication: BASAL CELL CARCINOMA
     Route: 065
     Dates: start: 20201215
  4. ELIQUIS [Concomitant]
     Active Substance: APIXABAN
  5. NAPROXEN. [Concomitant]
     Active Substance: NAPROXEN
  6. METOPROLOL. [Concomitant]
     Active Substance: METOPROLOL
  7. TAMSULOSIN [Concomitant]
     Active Substance: TAMSULOSIN
  8. METOPROLOL. [Concomitant]
     Active Substance: METOPROLOL

REACTIONS (1)
  - Pruritus [Not Recovered/Not Resolved]
